FAERS Safety Report 4479200-0 (Version None)
Quarter: 2004Q4

REPORT INFORMATION
  Report Type: 
  Country: None (occurrence: None)
  Receive Date: 20041015
  Receipt Date: 20041004
  Transmission Date: 20050328
  Serious: Yes (Congenital Anomaly, Other)
  Sender: FDA-Public Use
  Company Number: 2004230743DE

PATIENT
  Sex: Male

DRUGS (2)
  1. FRAGMIN [Suspect]
     Dosage: 1 DF, DAILY
     Dates: start: 20031013
  2. HEPARIN [Concomitant]

REACTIONS (7)
  - ANTEPARTUM HAEMORRHAGE [None]
  - CONGENITAL ANOMALY [None]
  - CONGENITAL FOOT MALFORMATION [None]
  - DRUG EXPOSURE DURING PREGNANCY [None]
  - DYSPLASIA [None]
  - LIMB REDUCTION DEFECT [None]
  - PES CAVUS [None]
